FAERS Safety Report 6219038-7 (Version None)
Quarter: 2009Q2

REPORT INFORMATION
  Report Type: 
  Country: None (occurrence: None)
  Receive Date: 20090608
  Receipt Date: 20090529
  Transmission Date: 20091009
  Serious: Yes (Other)
  Sender: FDA-Public Use
  Company Number: US-PFIZER INC-2009222437

PATIENT
  Sex: Female
  Weight: 96 kg

DRUGS (6)
  1. LIPITOR [Suspect]
     Indication: BLOOD CHOLESTEROL INCREASED
     Dates: end: 20081101
  2. VALSARTAN [Concomitant]
  3. PRILOSEC [Concomitant]
  4. PAXIL [Concomitant]
  5. XANAX [Concomitant]
  6. ASPIRIN [Concomitant]

REACTIONS (7)
  - CELLULITIS [None]
  - DIABETES MELLITUS [None]
  - DYSPNOEA [None]
  - LIGAMENT RUPTURE [None]
  - NECK PAIN [None]
  - NEUROPATHY PERIPHERAL [None]
  - PHARYNGEAL OEDEMA [None]
